FAERS Safety Report 12168092 (Version 1)
Quarter: 2016Q1

REPORT INFORMATION
  Report Type: Spontaneous
  Country: None (occurrence: None)
  Receive Date: 20160309
  Receipt Date: 20160309
  Transmission Date: 20160526
  Serious: Yes (Hospitalization)
  Sender: FDA-Public Use
  Company Number: None

PATIENT
  Age: 49 Year
  Sex: Male
  Weight: 73.5 kg

DRUGS (8)
  1. INVOKANA [Concomitant]
     Active Substance: CANAGLIFLOZIN
  2. LOSARTAN. [Concomitant]
     Active Substance: LOSARTAN
  3. TRULICITY [Concomitant]
     Active Substance: DULAGLUTIDE
  4. GLIPIZIDE. [Concomitant]
     Active Substance: GLIPIZIDE
  5. METFORMIN [Concomitant]
     Active Substance: METFORMIN HYDROCHLORIDE
  6. CANAGLIFOZIN 300 MG [Suspect]
     Active Substance: CANAGLIFLOZIN
     Indication: TYPE 2 DIABETES MELLITUS
     Dosage: 1 TABLET QD ORAL
     Route: 048
  7. SIMVASTATIN. [Concomitant]
     Active Substance: SIMVASTATIN
  8. ASA [Concomitant]
     Active Substance: ASPIRIN

REACTIONS (2)
  - Ketoacidosis [None]
  - Vomiting [None]

NARRATIVE: CASE EVENT DATE: 20160229
